FAERS Safety Report 7901480-7 (Version None)
Quarter: 2011Q4

REPORT INFORMATION
  Report Type: 
  Country: None (occurrence: None)
  Receive Date: 20111108
  Receipt Date: 20111031
  Transmission Date: 20120403
  Serious: Yes (Hospitalization, Other)
  Sender: FDA-Public Use
  Company Number: DE-JNJFOC-20111004856

PATIENT
  Age: 39 Year
  Sex: Male

DRUGS (5)
  1. PALIPERIDONE [Suspect]
     Indication: SCHIZOPHRENIA
     Route: 030
     Dates: start: 20110801
  2. LORAZEPAM [Concomitant]
     Route: 065
  3. DIAZEPAM [Concomitant]
     Route: 065
  4. BENPERIDOL [Concomitant]
     Route: 065
  5. BIPERIDEN HYDROCHLORIDE TAB [Concomitant]
     Route: 065

REACTIONS (4)
  - COGWHEEL RIGIDITY [None]
  - INSOMNIA [None]
  - SALIVARY HYPERSECRETION [None]
  - HOSPITALISATION [None]
